FAERS Safety Report 8387465-8 (Version None)
Quarter: 2012Q2

REPORT INFORMATION
  Report Type: 
  Country: None (occurrence: None)
  Receive Date: 20120525
  Receipt Date: 20120521
  Transmission Date: 20120825
  Serious: Yes (Hospitalization, Other)
  Sender: FDA-Public Use
  Company Number: PHEH2012US008259

PATIENT
  Sex: Female

DRUGS (23)
  1. NASONEX [Concomitant]
     Indication: ALLERGIC SINUSITIS
     Dosage: UNK
     Route: 045
  2. TRIAMTERENE [Concomitant]
     Indication: BLOOD PRESSURE
     Dosage: 37.5/25 MG
     Route: 048
  3. DYAZIDE [Suspect]
     Dosage: UNK
  4. WARFARIN SODIUM [Concomitant]
     Indication: ANTICOAGULANT THERAPY
     Dosage: 4 MG DAILY
     Route: 048
  5. SIMVASTATIN [Concomitant]
     Indication: BLOOD CHOLESTEROL
     Dosage: 20 MG, QD
     Route: 048
  6. FISH OIL [Concomitant]
     Indication: PROPHYLAXIS
     Dosage: UNK
  7. POTASSIUM GLUCONATE TAB [Concomitant]
     Indication: FLUID IMBALANCE
     Dosage: UNK
     Route: 048
  8. PROVENTIL [Concomitant]
     Dosage: UNK
  9. CLONIDINE [Concomitant]
     Indication: BLOOD PRESSURE
     Dosage: 0.1 MG, TID
  10. NORVASC [Concomitant]
     Indication: BLOOD PRESSURE
     Dosage: UNK
     Route: 048
  11. ZANTAC [Concomitant]
     Indication: GASTROOESOPHAGEAL REFLUX DISEASE
     Dosage: 150 MG, QD
     Route: 048
  12. DIOVAN [Suspect]
     Dosage: 160 MG, BID
  13. DIOVAN HCT [Suspect]
     Indication: BLOOD PRESSURE
     Dosage: 160 MG, QD
     Route: 048
  14. ZOCOR [Concomitant]
     Dosage: UNK
  15. SYNTHROID [Concomitant]
     Indication: THYROID DISORDER
     Dosage: 150 MG, QW2
  16. VITAMIN B COMPLEX CAP [Concomitant]
     Indication: PROPHYLAXIS
     Dosage: UNK DF DAILY
     Route: 048
  17. ALBUTEROL [Concomitant]
     Indication: ASTHMA
     Dosage: 17 G, PRN
     Route: 045
  18. FERROUS SULFATE TAB [Suspect]
     Dosage: UNK
  19. CLARINEX [Concomitant]
     Indication: HYPERSENSITIVITY
     Dosage: 5 MG DAILY
  20. GABAPENTIN [Concomitant]
     Indication: NEUROPATHY PERIPHERAL
     Dosage: 300 MG DAILY
     Route: 048
  21. SINGULAIR [Concomitant]
     Indication: HYPERSENSITIVITY
     Dosage: 10 MG, QD
     Route: 048
  22. JANUVIA [Concomitant]
     Indication: DIABETES MELLITUS
     Dosage: 50 MG DAILY
     Route: 048
  23. IRON [Concomitant]
     Indication: PROPHYLAXIS
     Dosage: UNK UKN, BID
     Route: 048

REACTIONS (2)
  - VAGINAL HAEMORRHAGE [None]
  - URINARY TRACT INFECTION [None]
